FAERS Safety Report 5695995-2 (Version None)
Quarter: 2008Q2

REPORT INFORMATION
  Report Type: 
  Country: None (occurrence: None)
  Receive Date: 20080407
  Receipt Date: 20071204
  Transmission Date: 20081010
  Serious: Yes (Hospitalization, Other)
  Sender: FDA-Public Use
  Company Number: BE-MERCK-0712BEL00001

PATIENT
  Age: 51 Year
  Sex: Female

DRUGS (1)
  1. CASPOFUNGIN ACETATE [Suspect]
     Indication: ASPERGILLOMA
     Route: 048
     Dates: start: 20071016

REACTIONS (1)
  - RESPIRATORY DISTRESS [None]
